FAERS Safety Report 5858178-9 (Version None)
Quarter: 2008Q3

REPORT INFORMATION
  Report Type: 
  Country: None (occurrence: None)
  Receive Date: 20080826
  Receipt Date: 20080821
  Transmission Date: 20090109
  Serious: Yes (Hospitalization, Other)
  Sender: FDA-Public Use
  Company Number: A0718447A

PATIENT
  Age: 49 Year
  Sex: Female
  Weight: 103.6 kg

DRUGS (9)
  1. AVANDIA [Suspect]
     Dosage: 8MG PER DAY
     Dates: start: 20060711, end: 20070611
  2. AVANDAMET [Suspect]
     Dates: start: 20060711, end: 20070611
  3. AVANDARYL [Suspect]
     Dates: start: 20060711, end: 20070611
  4. ACTOS [Concomitant]
     Dates: start: 20070301
  5. GLUCOPHAGE [Concomitant]
     Dates: start: 19900101
  6. METFORMIN HCL [Concomitant]
     Dates: start: 19900101
  7. INSULIN [Concomitant]
     Dates: start: 20070313
  8. GLUCOTROL [Concomitant]
     Dates: start: 20040901
  9. METOPROLOL TARTRATE [Concomitant]
     Dates: start: 20070301

REACTIONS (1)
  - MYOCARDIAL INFARCTION [None]
